FAERS Safety Report 9161001 (Version 2)
Quarter: 2013Q1

REPORT INFORMATION
  Report Type: Spontaneous
  Country: SE (occurrence: None)
  Receive Date: 20130122
  Receipt Date: 20130130
  Transmission Date: 20140127
  Serious: Yes (Hospitalization)
  Sender: FDA-Public Use
  Company Number: 2013034466

PATIENT
  Age: 39 Year
  Sex: Female

DRUGS (1)
  1. PRIVIGEN [Suspect]
     Dosage: (NOT OTHERWISE SPECIFIED)
     Route: 042
     Dates: start: 20120828

REACTIONS (3)
  - Meningitis aseptic [None]
  - Depressed level of consciousness [None]
  - Discomfort [None]
